FAERS Safety Report 6714910-3 (Version None)
Quarter: 2010Q2

REPORT INFORMATION
  Report Type: 
  Country: None (occurrence: None)
  Receive Date: 20100506
  Receipt Date: 20100506
  Transmission Date: 20101027
  Serious: Yes (Other)
  Sender: FDA-Public Use
  Company Number: None

PATIENT
  Age: 2 Year
  Sex: Female
  Weight: 12.7007 kg

DRUGS (2)
  1. CHILDREN'S TYLENOL SUSPENSION [Suspect]
     Indication: MASTOCYTOSIS
     Dosage: 1 TSP 2-3X/WEEK PO
     Route: 048
     Dates: start: 20090825, end: 20100502
  2. CHILDREN'S BENADRYL ALLERGY [Suspect]
     Indication: MASTOCYTOSIS
     Dosage: 1.5  TSP DAILY PO
     Route: 048
     Dates: start: 20090825, end: 20100502

REACTIONS (5)
  - LUNG INFECTION [None]
  - MALAISE [None]
  - PNEUMONIA [None]
  - PRODUCT QUALITY ISSUE [None]
  - RESPIRATORY SYNCYTIAL VIRUS INFECTION [None]
